FAERS Safety Report 9293870 (Version 1)
Quarter: 2013Q1

REPORT INFORMATION
  Report Type: Spontaneous
  Country: US (occurrence: None)
  Receive Date: 20121217
  Receipt Date: 20121217
  Transmission Date: 20140127
  Serious: Yes (Hospitalization)
  Sender: FDA-Public Use
  Company Number: 1000038490

PATIENT
  Sex: Male

DRUGS (2)
  1. NAMENDA [Suspect]
  2. GALANTAMINE [Suspect]

REACTIONS (2)
  - Cerebrovascular accident [None]
  - Hemiplegia [None]
